FAERS Safety Report 8269793-X (Version None)
Quarter: 2012Q2

REPORT INFORMATION
  Report Type: 
  Country: None (occurrence: None)
  Receive Date: 20120405
  Receipt Date: 20120403
  Transmission Date: 20120825
  Serious: Yes (Death)
  Sender: FDA-Public Use
  Company Number: ADR-2011-11311

PATIENT
  Sex: Male

DRUGS (5)
  1. LIORESAL [Suspect]
     Indication: BRAIN INJURY
     Dosage: SEE IMAGE, INTRATHECAL
     Route: 037
  2. LIORESAL [Suspect]
     Indication: HEAD INJURY
     Dosage: SEE IMAGE, INTRATHECAL
     Route: 037
  3. LIORESAL [Suspect]
     Indication: MUSCLE SPASTICITY
     Dosage: SEE IMAGE, INTRATHECAL
     Route: 037
  4. MORPHINE [Concomitant]
  5. DILAUDID [Concomitant]

REACTIONS (1)
  - DISEASE PROGRESSION [None]
